FAERS Safety Report 6142252-6 (Version None)
Quarter: 2009Q2

REPORT INFORMATION
  Report Type: 
  Country: None (occurrence: None)
  Receive Date: 20090401
  Receipt Date: 20090401
  Transmission Date: 20091009
  Serious: Yes (Other)
  Sender: FDA-Public Use
  Company Number: None

PATIENT
  Age: 42 Year
  Sex: Male
  Weight: 75.8 kg

DRUGS (1)
  1. TORICEL, 25MG, WYETH [Suspect]
     Indication: RENAL CELL CARCINOMA
     Dosage: 25MG WEEKLY IV
     Route: 042
     Dates: start: 20090219, end: 20090326

REACTIONS (1)
  - WHITE BLOOD CELL COUNT DECREASED [None]
